FAERS Safety Report 10196843 (Version 1)
Quarter: 2014Q2

REPORT INFORMATION
  Report Type: Report from Study
  Country: US (occurrence: US)
  Receive Date: 20140527
  Receipt Date: 20140527
  Transmission Date: 20141212
  Serious: Yes (Hospitalization, Other)
  Sender: FDA-Public Use
  Company Number: US-PURDUE-USA-2014-0114198

PATIENT
  Age: 63 Year
  Sex: Male

DRUGS (2)
  1. OXY CR TAB [Suspect]
     Indication: PRODUCT USED FOR UNKNOWN INDICATION
     Dosage: 80 MG, Q8H
     Route: 048
     Dates: start: 20130216
  2. OXY CR TAB [Suspect]
     Dosage: 80 MG, Q8H
     Route: 048
     Dates: start: 20140417

REACTIONS (4)
  - Road traffic accident [Unknown]
  - Rib fracture [Unknown]
  - Laceration [Unknown]
  - Dyspnoea [Unknown]
